FAERS Safety Report 6734462-1 (Version None)
Quarter: 2010Q2

REPORT INFORMATION
  Report Type: 
  Country: None (occurrence: None)
  Receive Date: 20100520
  Receipt Date: 20100512
  Transmission Date: 20101027
  Serious: Yes (Life-Threatening)
  Sender: FDA-Public Use
  Company Number: JP-BAXTER-2010BH009608

PATIENT
  Age: 78 Year
  Sex: Female

DRUGS (3)
  1. ENDOXAN BAXTER [Suspect]
     Indication: VASCULITIS
     Route: 048
     Dates: start: 20071222, end: 20080104
  2. ENDOXAN BAXTER [Suspect]
     Route: 042
     Dates: start: 20080107, end: 20080107
  3. PREDNISOLONE [Suspect]
     Indication: VASCULITIS
     Route: 048
     Dates: start: 20071217, end: 20080113

REACTIONS (2)
  - BRONCHOPULMONARY ASPERGILLOSIS [None]
  - CYTOMEGALOVIRUS INFECTION [None]
